FAERS Safety Report 6452768-0 (Version None)
Quarter: 2009Q4

REPORT INFORMATION
  Report Type: 
  Country: None (occurrence: None)
  Receive Date: 20091124
  Receipt Date: 20091112
  Transmission Date: 20100525
  Serious: Yes (Hospitalization)
  Sender: FDA-Public Use
  Company Number: US-PFIZER INC-2009297751

PATIENT
  Sex: Female

DRUGS (1)
  1. DIFLUCAN [Suspect]

REACTIONS (1)
  - ILL-DEFINED DISORDER [None]
